FAERS Safety Report 15908116 (Version 2)
Quarter: 2019Q1

REPORT INFORMATION
  Report Type: Spontaneous
  Country: SK (occurrence: SK)
  Receive Date: 20190204
  Receipt Date: 20190213
  Transmission Date: 20190417
  Serious: Yes (Other)
  Sender: FDA-Public Use
  Company Number: SK-PFIZER INC-2019048301

PATIENT
  Sex: Female

DRUGS (3)
  1. PREDNISON [Suspect]
     Active Substance: PREDNISONE
     Indication: INTERSTITIAL LUNG DISEASE
     Dosage: UNK
  2. SOLU-MEDROL [Suspect]
     Active Substance: METHYLPREDNISOLONE SODIUM SUCCINATE
     Indication: INTERSTITIAL LUNG DISEASE
     Dosage: 250 MG; (3 TIMES A MONTH - PULSE THERAPY)
  3. PREDNISON [Suspect]
     Active Substance: PREDNISONE
     Dosage: MAINTAINING DOSE OF 15 MG

REACTIONS (1)
  - Cervix carcinoma stage 0 [Unknown]
